FAERS Safety Report 12804053 (Version 2)
Quarter: 2016Q4

REPORT INFORMATION
  Report Type: Spontaneous
  Country: TR (occurrence: TR)
  Receive Date: 20161003
  Receipt Date: 20161007
  Transmission Date: 20170207
  Serious: Yes (Other)
  Sender: FDA-Public Use
  Company Number: TR-MYLANLABS-2016M1041930

PATIENT

DRUGS (11)
  1. CLOZAPINE. [Suspect]
     Active Substance: CLOZAPINE
     Dosage: 700 MG, QD
  2. ARIPIPRAZOLE. [Concomitant]
     Active Substance: ARIPIPRAZOLE
     Dosage: 30 MG, QD
  3. VALPROIC ACID. [Suspect]
     Active Substance: VALPROIC ACID
     Indication: SCHIZOPHRENIA
     Dosage: 500 MG, QD
     Dates: start: 2008
  4. VALPROIC ACID. [Suspect]
     Active Substance: VALPROIC ACID
     Dosage: 1000 MG, QD
     Dates: start: 2008
  5. ARIPIPRAZOLE. [Concomitant]
     Active Substance: ARIPIPRAZOLE
     Indication: SCHIZOPHRENIA
     Dosage: UNK
     Dates: start: 2008
  6. CLOZAPINE. [Suspect]
     Active Substance: CLOZAPINE
     Dosage: 575 MG, QD
  7. CLOZAPINE. [Suspect]
     Active Substance: CLOZAPINE
     Dosage: 625 MG, QD
  8. CLOZAPINE. [Suspect]
     Active Substance: CLOZAPINE
     Dosage: 900 MG, QD
  9. ARIPIPRAZOLE. [Concomitant]
     Active Substance: ARIPIPRAZOLE
     Dosage: 10 MG, QD
  10. CLOZAPINE. [Suspect]
     Active Substance: CLOZAPINE
     Indication: SCHIZOPHRENIA
     Dosage: UNK
     Dates: start: 2008
  11. VALPROIC ACID. [Suspect]
     Active Substance: VALPROIC ACID
     Dosage: 1500 MG, QD
     Dates: start: 2008

REACTIONS (3)
  - Drug ineffective [Unknown]
  - Drug resistance [Unknown]
  - Myoclonic epilepsy [Unknown]
